FAERS Safety Report 24595543 (Version 1)
Quarter: 2024Q4

REPORT INFORMATION
  Report Type: Spontaneous
  Country: JP (occurrence: JP)
  Receive Date: 20241109
  Receipt Date: 20241109
  Transmission Date: 20250114
  Serious: Yes (Death)
  Sender: ABBVIE
  Company Number: JP-TAKEDA-2024TJP015963

PATIENT
  Age: 90 Year
  Sex: Male

DRUGS (1)
  1. LEUPLIN [Suspect]
     Active Substance: LEUPROLIDE ACETATE
     Indication: Product used for unknown indication
     Dosage: UNK?FOR INJECTION 3.75 MG
     Route: 065

REACTIONS (2)
  - Arthralgia [Fatal]
  - Bedridden [Fatal]

NARRATIVE: CASE EVENT DATE: 20130101
